FAERS Safety Report 11929619 (Version 1)
Quarter: 2016Q1

REPORT INFORMATION
  Report Type: Spontaneous
  Country: US (occurrence: None)
  Receive Date: 20160119
  Receipt Date: 20160119
  Transmission Date: 20160526
  Serious: Yes (Disabling)
  Sender: FDA-Public Use
  Company Number: None

PATIENT
  Age: 69 Year
  Sex: Female
  Weight: 83.92 kg

DRUGS (4)
  1. METHYLDOPA. [Concomitant]
     Active Substance: METHYLDOPA
  2. HYDROCHLOROTHIAZIDE. [Concomitant]
     Active Substance: HYDROCHLOROTHIAZIDE
  3. ATENOLOL. [Concomitant]
     Active Substance: ATENOLOL
  4. CRESTOR [Suspect]
     Active Substance: ROSUVASTATIN CALCIUM
     Indication: BLOOD CHOLESTEROL INCREASED
     Dosage: 10 MG, 1 TAB/DAY, ONCE DAILY, BY MOUTH
     Dates: start: 20151001, end: 20151228

REACTIONS (8)
  - Oropharyngeal pain [None]
  - Vision blurred [None]
  - Arthralgia [None]
  - Cough [None]
  - Flatulence [None]
  - Fatigue [None]
  - Malaise [None]
  - Lymphadenopathy [None]

NARRATIVE: CASE EVENT DATE: 20151201
